FAERS Safety Report 15928576 (Version 2)
Quarter: 2019Q1

REPORT INFORMATION
  Report Type: Report from Study
  Country: TR (occurrence: TR)
  Receive Date: 20190206
  Receipt Date: 20190321
  Transmission Date: 20190417
  Serious: Yes (Death)
  Sender: FDA-Public Use
  Company Number: TR-BIOGEN-2019BI00684795

PATIENT
  Age: 6 Month
  Sex: Male

DRUGS (1)
  1. SPINRAZA [Suspect]
     Active Substance: NUSINERSEN
     Indication: SPINAL MUSCULAR ATROPHY
     Route: 050
     Dates: start: 20181226

REACTIONS (1)
  - Death [Fatal]

NARRATIVE: CASE EVENT DATE: 20190102
